FAERS Safety Report 5441863-0 (Version None)
Quarter: 2007Q3

REPORT INFORMATION
  Report Type: 
  Country: None (occurrence: None)
  Receive Date: 20070829
  Receipt Date: 20070822
  Transmission Date: 20080115
  Serious: Yes (Other)
  Sender: FDA-Public Use
  Company Number: 2007SP009494

PATIENT
  Age: 46 Year
  Sex: Male

DRUGS (3)
  1. PEG-INTRON [Suspect]
     Indication: HEPATITIS C
     Dosage: 120 MCG
     Dates: start: 20070421, end: 20070505
  2. REBETOL [Suspect]
     Indication: HEPATITIS C
     Dosage: 400 MG,QAM ; PO;  600 MG,QAM ; PO
     Route: 048
     Dates: start: 20070421, end: 20070505
  3. REBETOL [Suspect]
     Indication: HEPATITIS C
     Dosage: 400 MG,QAM ; PO;  600 MG,QAM ; PO
     Route: 048
     Dates: start: 20070421, end: 20070505

REACTIONS (6)
  - ABDOMINAL PAIN UPPER [None]
  - CHEST PAIN [None]
  - DYSPNOEA [None]
  - ECONOMIC PROBLEM [None]
  - GASTROINTESTINAL HAEMORRHAGE [None]
  - ULCER HAEMORRHAGE [None]
